FAERS Safety Report 5698351-6 (Version None)
Quarter: 2008Q2

REPORT INFORMATION
  Report Type: 
  Country: None (occurrence: None)
  Receive Date: 20080408
  Receipt Date: 20080327
  Transmission Date: 20081010
  Serious: Yes (Other)
  Sender: FDA-Public Use
  Company Number: BE-PFIZER INC-2008029534

PATIENT
  Age: 47 Year
  Sex: Female
  Weight: 70 kg

DRUGS (3)
  1. CHAMPIX [Suspect]
     Route: 048
  2. DUOVENT [Concomitant]
     Route: 055
  3. FLUTICASONE PROPIONATE [Concomitant]

REACTIONS (4)
  - BLOOD AMYLASE INCREASED [None]
  - FATIGUE [None]
  - LIPASE INCREASED [None]
  - MUSCULAR WEAKNESS [None]
